FAERS Safety Report 12828032 (Version 1)
Quarter: 2016Q4

REPORT INFORMATION
  Report Type: Spontaneous
  Country: US (occurrence: US)
  Receive Date: 20161007
  Receipt Date: 20161007
  Transmission Date: 20170207
  Serious: Yes (Other)
  Sender: FDA-Public Use
  Company Number: US-ALKERMES INC.-ALK-2016-001831

PATIENT
  Age: 41 Year
  Sex: Female

DRUGS (1)
  1. ARISTADA [Suspect]
     Active Substance: ARIPIPRAZOLE LAUROXIL
     Indication: SCHIZOPHRENIA
     Dosage: 441 MG, QMO
     Route: 030
     Dates: start: 201510

REACTIONS (10)
  - Suicide attempt [Unknown]
  - Fatigue [Unknown]
  - Somnolence [Unknown]
  - Depression [Unknown]
  - Apathy [Unknown]
  - Negative thoughts [Unknown]
  - Weight increased [Unknown]
  - Alopecia [Unknown]
  - Incontinence [Unknown]
  - Nightmare [Unknown]

NARRATIVE: CASE EVENT DATE: 2016
